FAERS Safety Report 8738971 (Version 6)
Quarter: 2014Q1

REPORT INFORMATION
  Report Type: Report from Study
  Country: JP (occurrence: TW)
  Receive Date: 20120823
  Receipt Date: 20140307
  Transmission Date: 20141002
  Serious: Yes (Death, Hospitalization, Other)
  Sender: FDA-Public Use
  Company Number: PHHY2012TW071069

PATIENT
  Age: 50 Year
  Sex: Female
  Weight: 50 kg

DRUGS (56)
  1. AMN107 [Suspect]
     Indication: CHRONIC MYELOID LEUKAEMIA
     Dosage: 800 MG/DAY
     Route: 048
     Dates: start: 20111015, end: 20120712
  2. DASATINIB [Concomitant]
     Indication: CHRONIC MYELOID LEUKAEMIA
     Dosage: 100 MG, DAILY
     Dates: start: 20120731, end: 20120803
  3. DOMPERIDONE [Concomitant]
     Indication: VOMITING
     Dosage: 10 MG
     Dates: start: 20120804
  4. ACETAMINOPHEN [Concomitant]
     Indication: PYREXIA
     Dosage: 500 MG
     Dates: start: 20120804
  5. VALPROATE SODIUM [Concomitant]
     Indication: EPILEPSY
     Dosage: 800 MG
     Dates: start: 20120804
  6. FLUCONAZOLE [Concomitant]
     Indication: INFECTION
     Dosage: 400 MG
     Dates: start: 20120804, end: 20120811
  7. CEFEPIME [Concomitant]
     Indication: SEPSIS
     Dosage: 6 G
     Dates: start: 20120804, end: 20120810
  8. ULTRACET [Concomitant]
     Indication: HEADACHE
     Dates: start: 20120804, end: 20120804
  9. FINSKA [Concomitant]
  10. ACYCLOVIR [Concomitant]
  11. ALGINIC ACID [Concomitant]
     Dates: start: 20120806, end: 20120806
  12. ASPIRIN [Concomitant]
     Dates: start: 20120626, end: 20120807
  13. AZITHROMYCIN [Concomitant]
     Dates: start: 20120515, end: 20120529
  14. CEFAZOLIN [Concomitant]
     Dates: start: 20120812
  15. CEFMETAZOLE [Concomitant]
     Indication: PANCREATITIS ACUTE
     Dates: start: 20120716, end: 20120722
  16. CHLORAMPHENICOL [Concomitant]
     Indication: INFECTION
     Dosage: UNK
     Dates: start: 20120812, end: 20120812
  17. DEXALTIN [Concomitant]
     Indication: MOUTH ULCERATION
     Dosage: UNK
     Dates: start: 20120804
  18. DEXTROMETHORPHAN [Concomitant]
     Indication: OROPHARYNGEAL PAIN
     Dates: start: 20120117, end: 20120201
  19. DIMETHYLPOLYSILOXANE [Concomitant]
     Indication: FLATULENCE
     Dates: start: 20120806, end: 20120806
  20. DIPHENHYDRAMINE [Concomitant]
     Dosage: UNK
     Dates: start: 20120716
  21. DIPHENIDOL [Concomitant]
     Indication: DIZZINESS
     Dates: start: 20111028, end: 20111206
  22. DIPHENIDOL HCL [Concomitant]
     Indication: VERTIGO
     Dates: start: 20120717, end: 20120717
  23. DOPAMINE [Concomitant]
     Indication: HYPOTENSION
     Dosage: UNK
     Dates: start: 20120813
  24. EPINEPHRINE [Concomitant]
     Indication: CARDIAC ARREST
     Dosage: UNK
     Dates: start: 20120813
  25. ERYTHROMYCIN [Concomitant]
     Indication: INFECTION
     Dates: start: 20120812, end: 20120812
  26. ESOMEPRAZOLE [Concomitant]
     Indication: PEPTIC ULCER
     Dosage: UNK
     Dates: start: 20120716, end: 20120718
  27. FAMOTIDINE [Concomitant]
     Indication: SUBARACHNOID HAEMORRHAGE
     Dosage: UNK
     Dates: start: 20120811
  28. FENTANYL CITRATE [Concomitant]
     Indication: ANAESTHESIA
     Dates: start: 20120812, end: 20120812
  29. FINSKA LP [Concomitant]
     Indication: UPPER RESPIRATORY TRACT INFECTION
     Dates: start: 20120103, end: 20120221
  30. FUSIDATE SODIUM [Concomitant]
     Indication: HERPES SIMPLEX
     Dates: start: 20120731, end: 20120807
  31. HYDROXYUREA [Concomitant]
     Indication: CHRONIC MYELOID LEUKAEMIA
     Dates: start: 20111111, end: 20111227
  32. KETOROLAC [Concomitant]
     Indication: HEADACHE
     Dosage: UNK
     Dates: start: 20120809, end: 20120809
  33. MAGNESIUM OXIDE [Concomitant]
     Indication: CONSTIPATION
     Dates: start: 20120716, end: 20120722
  34. MANNITOL [Concomitant]
     Indication: SUBARACHNOID HAEMORRHAGE
     Dates: start: 20120811, end: 20120812
  35. METOCLOPRAMIDE [Concomitant]
     Indication: VOMITING
     Dates: start: 20120807, end: 20120807
  36. MYCOMB [Concomitant]
     Indication: GENITAL HERPES
     Dates: start: 20111212, end: 20111226
  37. NITROGLYCERIN [Concomitant]
     Indication: CHEST DISCOMFORT
     Dates: start: 20120806, end: 20120807
  38. NOREPINEPHRINE [Concomitant]
     Dosage: UNK
     Dates: start: 20120812
  39. PERSANTIN [Concomitant]
     Indication: FLANK PAIN
     Dates: start: 20111122, end: 20111226
  40. POTASSIUM CHLORIDE [Concomitant]
     Indication: HYPOKALAEMIA
     Dosage: UNK
     Dates: start: 20120811
  41. PROCHLORPERAZINE [Concomitant]
     Indication: VOMITING
     Dates: start: 20120716, end: 20120716
  42. PROPOFOL [Concomitant]
     Indication: INDUCTION OF ANAESTHESIA
     Dates: start: 20120812, end: 20120812
  43. QUICRAN [Concomitant]
     Indication: GASTRIC ULCER
  44. REHISTACAL [Concomitant]
     Indication: PYREXIA
     Dosage: UNK
     Dates: start: 20120810, end: 20120810
  45. SENNOSIDE [Concomitant]
     Indication: CONSTIPATION
  46. SOLU CORTEF [Concomitant]
     Indication: HYPERSENSITIVITY
     Dates: start: 20120731, end: 20120731
  47. LYSINE ACETYLSALICYLATE [Concomitant]
     Indication: PYREXIA
     Dates: start: 20120804, end: 20120804
  48. STROCAIN [Concomitant]
  49. TEIRIA [Concomitant]
     Indication: FLANK PAIN
     Dosage: UNK
     Dates: start: 20111111
  50. TETRA [Concomitant]
     Indication: HYPOVOLAEMIA
     Dates: start: 20120716, end: 20120716
  51. THIAMYLAL SODIUM [Concomitant]
     Indication: INDUCTION OF ANAESTHESIA
     Dates: start: 20120812, end: 20120812
  52. TRAMADOL [Concomitant]
     Indication: ABDOMINAL PAIN
  53. VALPROATE [Concomitant]
     Indication: SUBARACHNOID HAEMORRHAGE
     Dosage: UNK
     Dates: start: 20120811
  54. XYLMOL [Concomitant]
     Indication: HAEMORRHOIDS
  55. ZOLPIDEM [Concomitant]
     Indication: INSOMNIA
     Dosage: UNK
     Dates: start: 20110802, end: 20110927
  56. ZOVIRAX [Concomitant]
     Indication: GENITAL HERPES
     Dates: start: 20111212, end: 20111231

REACTIONS (34)
  - Death [Fatal]
  - Pancytopenia [Unknown]
  - Pneumonia [Not Recovered/Not Resolved]
  - Neutropenia [Not Recovered/Not Resolved]
  - Febrile neutropenia [Not Recovered/Not Resolved]
  - Sepsis [Not Recovered/Not Resolved]
  - Stomatitis [Not Recovered/Not Resolved]
  - Thrombocytopenia [Not Recovered/Not Resolved]
  - Headache [Not Recovered/Not Resolved]
  - Nausea [Not Recovered/Not Resolved]
  - Vomiting [Not Recovered/Not Resolved]
  - Subarachnoid haemorrhage [Not Recovered/Not Resolved]
  - Brain oedema [Not Recovered/Not Resolved]
  - Hydrocephalus [Not Recovered/Not Resolved]
  - Depressed level of consciousness [Not Recovered/Not Resolved]
  - Pain in extremity [Not Recovered/Not Resolved]
  - Deafness bilateral [Not Recovered/Not Resolved]
  - Herpes virus infection [Not Recovered/Not Resolved]
  - Haemorrhage intracranial [Not Recovered/Not Resolved]
  - Subdural haematoma [Not Recovered/Not Resolved]
  - Intracranial pressure increased [Not Recovered/Not Resolved]
  - Abdominal pain [Recovered/Resolved]
  - Pancreatitis acute [Recovered/Resolved]
  - Haemoglobin decreased [Unknown]
  - Cardiac arrest [Unknown]
  - Mouth ulceration [Unknown]
  - Pruritus [Unknown]
  - Chest discomfort [Unknown]
  - Haemorrhoids [Unknown]
  - Insomnia [Unknown]
  - Abdominal pain upper [Unknown]
  - Dizziness [Unknown]
  - Pyrexia [Unknown]
  - Rash [Unknown]
